FAERS Safety Report 4918368-6 (Version None)
Quarter: 2006Q1

REPORT INFORMATION
  Report Type: 
  Country: None (occurrence: None)
  Receive Date: 20060214
  Receipt Date: 20060120
  Transmission Date: 20060701
  Serious: Yes (Other)
  Sender: FDA-Public Use
  Company Number: CZ200601003706

PATIENT
  Age: 1 Day
  Sex: Male

DRUGS (2)
  1. ZYPREXA [Suspect]
     Indication: OBSESSIVE-COMPULSIVE PERSONALITY DISORDER
     Dosage: 5 MG, DAILY (1/D), ORAL
     Route: 048
     Dates: start: 20051111, end: 20060111
  2. ESCITALOPRAM (ESCITALOPRAM) [Concomitant]

REACTIONS (10)
  - BRADYCARDIA FOETAL [None]
  - BRADYPNOEA [None]
  - DRUG EXPOSURE DURING PREGNANCY [None]
  - EXTRAPYRAMIDAL DISORDER [None]
  - FORCEPS DELIVERY [None]
  - HYPOTONIA NEONATAL [None]
  - HYPOVENTILATION NEONATAL [None]
  - NEONATAL DISORDER [None]
  - SEDATION [None]
  - TREMOR NEONATAL [None]
